FAERS Safety Report 12528171 (Version 2)
Quarter: 2016Q3

REPORT INFORMATION
  Report Type: Spontaneous
  Country: US (occurrence: US)
  Receive Date: 20160705
  Receipt Date: 20160810
  Transmission Date: 20161109
  Serious: Yes (Hospitalization)
  Sender: FDA-Public Use
  Company Number: US-JNJFOC-20160701078

PATIENT
  Age: 60 Year
  Sex: Female
  Weight: 89.36 kg

DRUGS (12)
  1. LOSARTAN. [Concomitant]
     Active Substance: LOSARTAN
     Route: 048
     Dates: start: 20140216
  2. ASPIRIN. [Concomitant]
     Active Substance: ASPIRIN
     Route: 065
     Dates: start: 20160629
  3. METOPROLOL SUCCINATE. [Concomitant]
     Active Substance: METOPROLOL SUCCINATE
     Route: 048
     Dates: start: 20140216
  4. NOVOLOG [Concomitant]
     Active Substance: INSULIN ASPART
     Route: 058
     Dates: start: 20160629
  5. CELEBREX [Concomitant]
     Active Substance: CELECOXIB
     Route: 065
     Dates: start: 20160511
  6. LEVOTHYROXINE. [Concomitant]
     Active Substance: LEVOTHYROXINE
     Dosage: ONE TABLET DAILY AND HALF TABLET ON SUNDAYS
     Route: 048
     Dates: start: 20150810
  7. VITAMIN D2 [Concomitant]
     Active Substance: ERGOCALCIFEROL
     Route: 065
     Dates: start: 20160511
  8. CENESTIN [Concomitant]
     Active Substance: ESTROGENS, CONJUGATED SYNTHETIC A
     Route: 048
     Dates: start: 20140216
  9. TOUJEO [Concomitant]
     Active Substance: INSULIN GLARGINE
     Dosage: 22 UNITS IN MORNING AND 28 UNITS IN EVENING
     Route: 058
     Dates: start: 20160127
  10. INVOKAMET [Suspect]
     Active Substance: CANAGLIFLOZIN\METFORMIN HYDROCHLORIDE
     Indication: TYPE 2 DIABETES MELLITUS
     Dosage: DOSE: 50/1000 MG
     Route: 065
     Dates: start: 20150816, end: 20160608
  11. CRESTOR [Concomitant]
     Active Substance: ROSUVASTATIN CALCIUM
     Route: 048
     Dates: start: 20140216
  12. PHENTERMINE. [Concomitant]
     Active Substance: PHENTERMINE
     Dosage: BEFORE 10 AM
     Route: 065
     Dates: start: 20150623

REACTIONS (2)
  - Hepatic failure [Unknown]
  - Urosepsis [Unknown]

NARRATIVE: CASE EVENT DATE: 201606
